FAERS Safety Report 7150711-2 (Version None)
Quarter: 2010Q4

REPORT INFORMATION
  Report Type: 
  Country: None (occurrence: None)
  Receive Date: 20101124
  Receipt Date: 20101108
  Transmission Date: 20110411
  Serious: Yes (Other)
  Sender: FDA-Public Use
  Company Number: 1000017359

PATIENT
  Age: 60 Year
  Sex: Female

DRUGS (4)
  1. CITALOPRAM HYDROBROMIDE [Suspect]
  2. OMEPRAZOLE [Suspect]
     Indication: GASTRITIS
     Dates: start: 20050201, end: 20070101
  3. TRAMADOL HCL [Suspect]
  4. BETAHISTINE (BETAHISTINE) [Suspect]

REACTIONS (2)
  - RENAL FAILURE CHRONIC [None]
  - TUBULOINTERSTITIAL NEPHRITIS [None]
